FAERS Safety Report 7735367-X (Version None)
Quarter: 2011Q3

REPORT INFORMATION
  Report Type: 
  Country: None (occurrence: None)
  Receive Date: 20110907
  Receipt Date: 20110825
  Transmission Date: 20111222
  Serious: Yes (Death, Other)
  Sender: FDA-Public Use
  Company Number: JP-CELGENEUS-163-21880-07110878

PATIENT
  Age: 65 Year
  Sex: Male

DRUGS (20)
  1. LASIX [Concomitant]
     Route: 065
  2. FOLIC ACID [Concomitant]
     Route: 065
  3. REVLIMID [Suspect]
     Indication: MULTIPLE MYELOMA
     Dosage: 15 MILLIGRAM
     Route: 048
     Dates: start: 20070919, end: 20071110
  4. MEPRON [Concomitant]
     Route: 065
  5. DEXAMETHASONE [Suspect]
     Indication: MULTIPLE MYELOMA
     Dosage: 20 MILLIGRAM
     Route: 048
     Dates: start: 20070919, end: 20071110
  6. FAMVIR [Concomitant]
     Route: 065
  7. BORTEZOMIB [Suspect]
     Indication: MULTIPLE MYELOMA
     Dosage: 2.3 MILLIGRAM
     Route: 041
     Dates: start: 20070919, end: 20071109
  8. VELCADE [Concomitant]
     Route: 065
  9. NORVASC [Concomitant]
     Route: 065
  10. OMEPRAZOLE [Concomitant]
     Route: 065
  11. LOMOTIL [Concomitant]
     Route: 065
  12. RITALIN [Concomitant]
     Route: 065
  13. FLUCONAZOLE [Concomitant]
     Route: 065
  14. LOPRESSOR [Concomitant]
     Route: 065
  15. ALLOPURINOL [Concomitant]
     Route: 065
  16. THYROID TAB [Concomitant]
     Route: 065
  17. OXYCODONE HCL [Concomitant]
     Route: 065
  18. HYDROCHLORIAZIDE [Concomitant]
     Route: 065
  19. CELEXA [Concomitant]
     Route: 065
  20. AREDIA [Concomitant]
     Route: 065

REACTIONS (6)
  - PULMONARY ALVEOLAR HAEMORRHAGE [None]
  - PLEURAL EFFUSION [None]
  - PNEUMONIA [None]
  - FEBRILE NEUTROPENIA [None]
  - DISEASE PROGRESSION [None]
  - SEPTIC SHOCK [None]
